FAERS Safety Report 24310098 (Version 1)
Quarter: 2024Q3

REPORT INFORMATION
  Report Type: Spontaneous
  Country: US (occurrence: US)
  Receive Date: 20240912
  Receipt Date: 20240912
  Transmission Date: 20241016
  Serious: No
  Sender: ASTELLAS
  Company Number: US-ASTELLAS-2024-AER-003560

PATIENT
  Age: 65 Year
  Sex: Male

DRUGS (7)
  1. XTANDI [Suspect]
     Active Substance: ENZALUTAMIDE
     Indication: Prostate cancer
     Dosage: 160MG QD
     Route: 065
     Dates: start: 20210511
  2. XTANDI [Suspect]
     Active Substance: ENZALUTAMIDE
     Dosage: 80MG, QD
     Route: 065
  3. XTANDI [Suspect]
     Active Substance: ENZALUTAMIDE
     Dosage: 40MG, QD
     Route: 065
  4. ORGOVYX [Suspect]
     Active Substance: RELUGOLIX
     Indication: Prostate cancer
     Route: 048
     Dates: start: 20210319
  5. ORGOVYX [Suspect]
     Active Substance: RELUGOLIX
     Route: 048
  6. ORGOVYX [Suspect]
     Active Substance: RELUGOLIX
     Route: 048
  7. ORGOVYX [Suspect]
     Active Substance: RELUGOLIX
     Route: 048

REACTIONS (1)
  - Bone density abnormal [Unknown]
